FAERS Safety Report 5514618-6 (Version None)
Quarter: 2007Q4

REPORT INFORMATION
  Report Type: 
  Country: None (occurrence: None)
  Receive Date: 20071113
  Receipt Date: 20071101
  Transmission Date: 20080405
  Serious: Yes (Hospitalization, Other)
  Sender: FDA-Public Use
  Company Number: AU-PFIZER INC-2007093414

PATIENT
  Sex: Male
  Weight: 120 kg

DRUGS (9)
  1. CHAMPIX [Suspect]
     Indication: SMOKING CESSATION THERAPY
     Route: 048
     Dates: start: 20071029, end: 20071102
  2. EPILIM [Concomitant]
  3. FERROUS FUMARATE/FOLIC ACID [Concomitant]
  4. FLUANXOL DEPOT [Concomitant]
  5. LUVOX [Concomitant]
  6. NOTEN [Concomitant]
  7. SERETIDE [Concomitant]
  8. LEVOTHYROXINE SODIUM [Concomitant]
  9. ZYPREXA [Concomitant]

REACTIONS (5)
  - AGITATION [None]
  - HEADACHE [None]
  - INSOMNIA [None]
  - INTENTIONAL SELF-INJURY [None]
  - NAUSEA [None]
